FAERS Safety Report 7159889-8 (Version None)
Quarter: 2010Q4

REPORT INFORMATION
  Report Type: 
  Country: None (occurrence: None)
  Receive Date: 20101214
  Receipt Date: 20101129
  Transmission Date: 20110411
  Serious: Yes (Disabling)
  Sender: FDA-Public Use
  Company Number: US-ELI_LILLY_AND_COMPANY-US201010005304

PATIENT
  Sex: Male
  Weight: 51.1 kg

DRUGS (4)
  1. SOMATROPIN [Suspect]
     Indication: GROWTH HORMONE DEFICIENCY
     Dosage: 3 MG, 6/W
     Route: 058
     Dates: start: 20031105, end: 20081001
  2. SOMATROPIN [Suspect]
     Dosage: UNK, 6/W
     Route: 058
     Dates: start: 20081001, end: 20100915
  3. CALCIUM CARBONATE [Concomitant]
     Indication: HYPOPHOSPHATAEMIC RICKETS
     Dosage: UNK, UNKNOWN
     Route: 065
     Dates: start: 19970709
  4. PHOSPHA 250 NEUTRA [Concomitant]
     Indication: HYPOPHOSPHATAEMIC RICKETS
     Dosage: UNK, UNKNOWN
     Route: 065
     Dates: start: 19970709

REACTIONS (1)
  - DEAFNESS UNILATERAL [None]
